FAERS Safety Report 15670909 (Version 1)
Quarter: 2018Q4

REPORT INFORMATION
  Report Type: Spontaneous
  Country: DE (occurrence: DE)
  Receive Date: 20181129
  Receipt Date: 20181129
  Transmission Date: 20190205
  Serious: No
  Sender: FDA-Public Use
  Company Number: DE-NODEN PHARMA DAC-NOD-2018-000001

PATIENT
  Sex: Male

DRUGS (3)
  1. INNOVAIR [Concomitant]
     Active Substance: BECLOMETHASONE DIPROPIONATE\FORMOTEROL
     Indication: ASTHMA
     Dosage: 100/6 MG, BID
     Route: 045
     Dates: start: 2015
  2. RASILEZ HCT [Suspect]
     Active Substance: ALISKIREN\HYDROCHLOROTHIAZIDE
     Indication: HYPERTENSION
     Dosage: UNK
     Route: 065
     Dates: end: 2017
  3. RASILEZ HCT [Suspect]
     Active Substance: ALISKIREN\HYDROCHLOROTHIAZIDE
     Indication: HYPERTENSION
     Dosage: 300 MG, QD
     Route: 048
     Dates: start: 20170721

REACTIONS (19)
  - Insomnia [Unknown]
  - Oral disorder [Unknown]
  - Visual impairment [Unknown]
  - Dizziness [Unknown]
  - Depression [Unknown]
  - Dyspnoea [Unknown]
  - Peripheral swelling [Unknown]
  - Rash [Unknown]
  - Lip swelling [Unknown]
  - Pruritus [Unknown]
  - Constipation [Unknown]
  - Pharyngeal oedema [Unknown]
  - Pyrexia [Unknown]
  - Dysphagia [Unknown]
  - Blood pressure increased [Unknown]
  - Abdominal pain upper [Unknown]
  - Oedema [Unknown]
  - Oropharyngeal pain [Unknown]
  - Swelling face [Unknown]

NARRATIVE: CASE EVENT DATE: 2017
